FAERS Safety Report 18328487 (Version 1)
Quarter: 2020Q3

REPORT INFORMATION
  Report Type: Spontaneous
  Country: JP (occurrence: JP)
  Receive Date: 20200930
  Receipt Date: 20200930
  Transmission Date: 20201103
  Serious: Yes (Other)
  Sender: FDA-Public Use
  Company Number: JP-ROCHE-2686096

PATIENT
  Age: 80 Year
  Sex: Female

DRUGS (2)
  1. CRAVIT [Concomitant]
     Active Substance: LEVOFLOXACIN
     Indication: PRODUCT USED FOR UNKNOWN INDICATION
     Route: 047
     Dates: start: 20200905
  2. LUCENTIS [Suspect]
     Active Substance: RANIBIZUMAB
     Indication: AGE-RELATED MACULAR DEGENERATION
     Route: 031
     Dates: start: 20200908

REACTIONS (3)
  - Endophthalmitis [Recovered/Resolved]
  - Retinal haemorrhage [Unknown]
  - Eye disorder [Unknown]

NARRATIVE: CASE EVENT DATE: 20200913
